FAERS Safety Report 19158204 (Version 1)
Quarter: 2021Q2

REPORT INFORMATION
  Report Type: Spontaneous
  Country: JP (occurrence: JP)
  Receive Date: 20210420
  Receipt Date: 20210420
  Transmission Date: 20210717
  Serious: Yes (Other)
  Sender: FDA-Public Use
  Company Number: JP-BAYER-2021-123568

PATIENT
  Age: 6 Decade
  Sex: Male

DRUGS (1)
  1. STIVARGA [Suspect]
     Active Substance: REGORAFENIB
     Indication: COLON CANCER
     Dosage: DAILY DOSE 40MG
     Dates: start: 20190618, end: 20210112

REACTIONS (2)
  - Colon cancer [Recovering/Resolving]
  - Off label use [None]

NARRATIVE: CASE EVENT DATE: 20190618
